FAERS Safety Report 7061807-8 (Version None)
Quarter: 2010Q4

REPORT INFORMATION
  Report Type: 
  Country: None (occurrence: None)
  Receive Date: 20101026
  Receipt Date: 20101021
  Transmission Date: 20110411
  Serious: Yes (Hospitalization)
  Sender: FDA-Public Use
  Company Number: US-GILEAD-2010-0032804

PATIENT
  Sex: Male
  Weight: 79.45 kg

DRUGS (2)
  1. LETAIRIS [Suspect]
     Indication: PULMONARY ARTERIAL HYPERTENSION
     Route: 048
     Dates: start: 20091110
  2. COUMADIN [Concomitant]

REACTIONS (2)
  - CARDIAC OPERATION [None]
  - PULMONARY ARTERIAL HYPERTENSION [None]
